FAERS Safety Report 8185360-0 (Version None)
Quarter: 2012Q1

REPORT INFORMATION
  Report Type: 
  Country: None (occurrence: None)
  Receive Date: 20120305
  Receipt Date: 20120228
  Transmission Date: 20120608
  Serious: Yes (Death, Life-Threatening, Hospitalization, Other)
  Sender: FDA-Public Use
  Company Number: PHHY2012DE004521

PATIENT
  Age: 55 Year
  Sex: Female

DRUGS (4)
  1. CYCLOSPORINE [Suspect]
     Indication: GASTROINTESTINAL INFLAMMATION
     Dosage: 3 MG/KG, AS CONTINUOUS INFUSION OVER 24 H
     Route: 042
  2. ANTIBIOTICS [Concomitant]
     Indication: GASTROINTESTINAL INFLAMMATION
     Dosage: UNK UKN, UNK
  3. PREDNISOLONE [Suspect]
     Dosage: 1 MG/KG/DAY
  4. PREDNISOLONE [Suspect]
     Indication: GASTROINTESTINAL INFLAMMATION
     Dosage: 2 MG/KG/DAY

REACTIONS (21)
  - ERYTHEMA [None]
  - CHEMICAL PERITONITIS [None]
  - HEPATIC FAILURE [None]
  - MEGACOLON [None]
  - BLISTER [None]
  - LEUKOPENIA [None]
  - ACUTE RESPIRATORY DISTRESS SYNDROME [None]
  - RASH MACULAR [None]
  - RESPIRATORY FAILURE [None]
  - ILEUS PARALYTIC [None]
  - SCAB [None]
  - BRONCHOPULMONARY ASPERGILLOSIS [None]
  - MULTI-ORGAN FAILURE [None]
  - ASCITES [None]
  - CHOLECYSTITIS ACUTE [None]
  - SEPTIC SHOCK [None]
  - INTESTINAL ISCHAEMIA [None]
  - HERPES ZOSTER DISSEMINATED [None]
  - RENAL FAILURE ACUTE [None]
  - SKIN HAEMORRHAGE [None]
  - RASH PUSTULAR [None]
